FAERS Safety Report 13525702 (Version 1)
Quarter: 2017Q2

REPORT INFORMATION
  Report Type: Spontaneous
  Country: US (occurrence: US)
  Receive Date: 20170509
  Receipt Date: 20170509
  Transmission Date: 20170830
  Serious: Yes (Hospitalization, Other)
  Sender: FDA-Public Use
  Company Number: US-ZYDUS-015012

PATIENT
  Age: 68 Year
  Sex: Male

DRUGS (1)
  1. WARFARIN [Suspect]
     Active Substance: WARFARIN
     Indication: PRODUCT USED FOR UNKNOWN INDICATION
     Route: 065

REACTIONS (17)
  - Laceration [Recovering/Resolving]
  - Streptococcus test positive [Unknown]
  - Dilatation ventricular [Unknown]
  - Skin ulcer [Recovering/Resolving]
  - Ejection fraction abnormal [Unknown]
  - Ventricular hypokinesia [Unknown]
  - Skin necrosis [Recovering/Resolving]
  - Purpura [Recovering/Resolving]
  - Skin exfoliation [Recovering/Resolving]
  - Vasculitis [Unknown]
  - Proteinuria [Unknown]
  - Red blood cell count increased [Unknown]
  - White blood cell count increased [Unknown]
  - Hypercoagulation [Unknown]
  - Aortic dilatation [Unknown]
  - Oedema peripheral [Recovering/Resolving]
  - Skin discolouration [Recovering/Resolving]
